FAERS Safety Report 6543411-0 (Version None)
Quarter: 2010Q1

REPORT INFORMATION
  Report Type: 
  Country: None (occurrence: None)
  Receive Date: 20100120
  Receipt Date: 20100112
  Transmission Date: 20100710
  Serious: Yes (Other)
  Sender: FDA-Public Use
  Company Number: US-ASTRAZENECA-2010SE01320

PATIENT

DRUGS (2)
  1. FASLODEX [Suspect]
     Indication: BREAST CANCER METASTATIC
     Route: 030
  2. FASLODEX [Suspect]
     Indication: DISEASE PROGRESSION
     Route: 030

REACTIONS (2)
  - PULMONARY EMBOLISM [None]
  - TUMOUR MARKER INCREASED [None]
